FAERS Safety Report 18630886 (Version 1)
Quarter: 2020Q4

REPORT INFORMATION
  Report Type: Spontaneous
  Country: US (occurrence: US)
  Receive Date: 20201217
  Receipt Date: 20201217
  Transmission Date: 20210114
  Serious: Yes (Hospitalization)
  Sender: FDA-Public Use
  Company Number: US-ELI_LILLY_AND_COMPANY-US202012006026

PATIENT
  Age: 91 Year
  Sex: Male
  Weight: 54 kg

DRUGS (14)
  1. BUSPIRONE [Concomitant]
     Active Substance: BUSPIRONE HYDROCHLORIDE
  2. CHOLECALCIFEROL [Concomitant]
     Active Substance: CHOLECALCIFEROL
  3. IBUPROFEN. [Concomitant]
     Active Substance: IBUPROFEN
  4. MILK OF MAGNESIA [Concomitant]
     Active Substance: MAGNESIUM HYDROXIDE
  5. ACETAMINOPHEN. [Concomitant]
     Active Substance: ACETAMINOPHEN
  6. DOCUSATE [Concomitant]
     Active Substance: DOCUSATE
  7. BISACODYL. [Concomitant]
     Active Substance: BISACODYL
  8. TAMSULOSIN [Concomitant]
     Active Substance: TAMSULOSIN
  9. LORAZEPAM. [Concomitant]
     Active Substance: LORAZEPAM
  10. PAROXETINE. [Concomitant]
     Active Substance: PAROXETINE
  11. BAMLANIVIMAB. [Suspect]
     Active Substance: BAMLANIVIMAB
     Indication: COVID-19
     Dosage: 700 MG, SINGLE
     Route: 042
     Dates: start: 20201208, end: 20201208
  12. ASPIRIN 81 [Concomitant]
     Active Substance: ASPIRIN
  13. PANTOPRAZOLE [Concomitant]
     Active Substance: PANTOPRAZOLE
  14. MELATONIN [Concomitant]
     Active Substance: MELATONIN

REACTIONS (7)
  - Oxygen saturation decreased [Unknown]
  - Pain in extremity [Unknown]
  - Abdominal discomfort [Unknown]
  - Pyrexia [Unknown]
  - Chills [Unknown]
  - COVID-19 pneumonia [Unknown]
  - Restlessness [Unknown]
